FAERS Safety Report 25394734 (Version 4)
Quarter: 2025Q3

REPORT INFORMATION
  Report Type: Report from Study
  Country: US (occurrence: US)
  Receive Date: 20250604
  Receipt Date: 20250918
  Transmission Date: 20251021
  Serious: No
  Sender: SUNOVION
  Company Number: US-SUMITOMO PHARMA SWITZERLAND GMBH-2025SPA005889

PATIENT
  Age: 53 Year
  Sex: Male

DRUGS (5)
  1. ORGOVYX [Suspect]
     Active Substance: RELUGOLIX
     Indication: Prostate cancer
     Dosage: 360 MG, SINGLE
     Route: 048
     Dates: start: 20250506, end: 20250506
  2. ORGOVYX [Suspect]
     Active Substance: RELUGOLIX
     Dosage: 120 MG, QD
     Route: 048
     Dates: start: 20250507
  3. CIALIS [Concomitant]
     Active Substance: TADALAFIL
  4. OMEPRAZOLE [Concomitant]
     Active Substance: OMEPRAZOLE
  5. TADALAFIL [Concomitant]
     Active Substance: TADALAFIL

REACTIONS (5)
  - Pollakiuria [Unknown]
  - Diarrhoea [Unknown]
  - Constipation [Unknown]
  - Fatigue [Unknown]
  - Therapy interrupted [Recovered/Resolved]
